FAERS Safety Report 17000667 (Version 1)
Quarter: 2019Q4

REPORT INFORMATION
  Report Type: Spontaneous
  Country: BR (occurrence: BR)
  Receive Date: 20191106
  Receipt Date: 20191106
  Transmission Date: 20200122
  Serious: Yes (Death, Other)
  Sender: FDA-Public Use
  Company Number: BR-AMERICAN REGENT INC-2019002412

PATIENT
  Sex: Male

DRUGS (1)
  1. FERINJECT [Suspect]
     Active Substance: FERRIC CARBOXYMALTOSE
     Indication: ANAEMIA
     Dosage: 5000 MILLIGRAM IN 5 DAYS, (1000 MG,1 IN 1 D)
     Route: 042
     Dates: start: 2019, end: 2019

REACTIONS (7)
  - Iron overload [Unknown]
  - Adverse event [Unknown]
  - Tachycardia [Unknown]
  - Overdose [Unknown]
  - Death [Fatal]
  - Medication error [Fatal]
  - Poisoning [Unknown]

NARRATIVE: CASE EVENT DATE: 2019
